FAERS Safety Report 4892624-2 (Version None)
Quarter: 2006Q1

REPORT INFORMATION
  Report Type: 
  Country: None (occurrence: None)
  Receive Date: 20060126
  Receipt Date: 20050210
  Transmission Date: 20060701
  Serious: Yes (Hospitalization)
  Sender: FDA-Public Use
  Company Number: FR-ROCHE-395090

PATIENT
  Age: 54 Year
  Sex: Female

DRUGS (7)
  1. CAPECITABINE [Suspect]
     Dosage: DAY 1 TO 14.
     Route: 048
     Dates: start: 20040409, end: 20040906
  2. VINORELBINE [Suspect]
     Dosage: DAY 1 AND DAY 8
     Route: 048
     Dates: start: 20040409, end: 20040904
  3. LOPERAMIDE [Concomitant]
  4. MOPRAL [Concomitant]
     Route: 048
     Dates: start: 20040703
  5. ARANESP [Concomitant]
     Indication: ANAEMIA
     Route: 058
     Dates: start: 20040521
  6. SOLU-MEDROL [Concomitant]
     Indication: DYSPNOEA
     Dates: start: 20040703
  7. IMODIUM [Concomitant]
     Indication: DIARRHOEA
     Route: 048
     Dates: start: 20040813

REACTIONS (25)
  - ABDOMINAL DISTENSION [None]
  - ABDOMINAL PAIN [None]
  - ALANINE AMINOTRANSFERASE INCREASED [None]
  - ANAEMIA [None]
  - ANOREXIA [None]
  - ASCITES [None]
  - ASPARTATE AMINOTRANSFERASE INCREASED [None]
  - ASTHENIA [None]
  - BLOOD ALKALINE PHOSPHATASE INCREASED [None]
  - CEREBROVASCULAR ACCIDENT [None]
  - CONDITION AGGRAVATED [None]
  - CONSTIPATION [None]
  - DEHYDRATION [None]
  - DIARRHOEA [None]
  - DRY SKIN [None]
  - FACIAL PALSY [None]
  - HEMIPLEGIA [None]
  - HYPOKALAEMIA [None]
  - INSOMNIA [None]
  - MENINGIOMA [None]
  - METASTASES TO CENTRAL NERVOUS SYSTEM [None]
  - ORAL FUNGAL INFECTION [None]
  - PHARYNGOLARYNGEAL PAIN [None]
  - STOMATITIS [None]
  - SUPERINFECTION LUNG [None]
